FAERS Safety Report 18533807 (Version 1)
Quarter: 2020Q4

REPORT INFORMATION
  Report Type: Spontaneous
  Country: US (occurrence: US)
  Receive Date: 20201121
  Receipt Date: 20201121
  Transmission Date: 20210114
  Serious: Yes (Hospitalization)
  Sender: FDA-Public Use
  Company Number: None

PATIENT
  Sex: Female
  Weight: 83.6 kg

DRUGS (4)
  1. CARBOPLATIN 640 MG [Suspect]
     Active Substance: CARBOPLATIN
     Dates: end: 20201009
  2. CYCLOPHOSPHAMIDE 0 MG [Suspect]
     Active Substance: CYCLOPHOSPHAMIDE
     Dates: end: 20200925
  3. TAXOL [Suspect]
     Active Substance: PACLITAXEL
     Dates: end: 20201106
  4. DOXORUBICIN HYDROCHLORIDE 0 MG [Suspect]
     Active Substance: DOXORUBICIN HYDROCHLORIDE
     Dates: end: 20200925

REACTIONS (3)
  - Pelvic abscess [None]
  - Abdominal pain [None]
  - Diverticulitis [None]

NARRATIVE: CASE EVENT DATE: 20201111
